FAERS Safety Report 19462267 (Version 1)
Quarter: 2021Q2

REPORT INFORMATION
  Report Type: Spontaneous
  Country: US (occurrence: US)
  Receive Date: 20210625
  Receipt Date: 20210625
  Transmission Date: 20210717
  Serious: Yes (Hospitalization)
  Sender: FDA-Public Use
  Company Number: US-MYLANLABS-2021M1037484

PATIENT
  Age: 43 Year
  Sex: Female

DRUGS (3)
  1. NPLATE [Concomitant]
     Active Substance: ROMIPLOSTIM
     Indication: PLATELET COUNT DECREASED
     Dosage: UNK
     Route: 065
  2. HEPARIN [Suspect]
     Active Substance: HEPARIN SODIUM
     Dosage: INCREASE THE DOSAGE OF HEPARIN TO ACHIEVE A TARGET APTT OF 70 TO 80S
     Route: 042
  3. HEPARIN [Suspect]
     Active Substance: HEPARIN SODIUM
     Indication: ANTICOAGULANT THERAPY
     Dosage: 15 TO 20 UNITS/KG/H
     Route: 042

REACTIONS (2)
  - Drug ineffective [Unknown]
  - Hypocoagulable state [Recovered/Resolved]
